FAERS Safety Report 24741749 (Version 1)
Quarter: 2024Q4

REPORT INFORMATION
  Report Type: Spontaneous
  Country: EG (occurrence: EG)
  Receive Date: 20241217
  Receipt Date: 20241217
  Transmission Date: 20250115
  Serious: Yes (Other)
  Sender: STRIDES
  Company Number: EG-STRIDES ARCOLAB LIMITED-2024SP016517

PATIENT

DRUGS (3)
  1. ETOPOSIDE [Suspect]
     Active Substance: ETOPOSIDE
     Indication: Nodular lymphocyte predominant Hodgkin lymphoma
     Dosage: UNK, CYCLICAL (WITH A TOTAL NUMBER OF CYCLES OF 4-6 CYCLES)
     Route: 065
  2. IFOSFAMIDE [Suspect]
     Active Substance: IFOSFAMIDE
     Indication: Nodular lymphocyte predominant Hodgkin lymphoma
     Dosage: UNK, CYCLICAL (WITH A TOTAL NUMBER OF CYCLES OF 4-6 CYCLES)
     Route: 065
  3. CARBOPLATIN [Suspect]
     Active Substance: CARBOPLATIN
     Indication: Nodular lymphocyte predominant Hodgkin lymphoma
     Dosage: UNK, CYCLICAL (WITH A TOTAL NUMBER OF CYCLES OF 4-6 CYCLES)
     Route: 065

REACTIONS (2)
  - Malignant neoplasm progression [Recovered/Resolved]
  - Drug ineffective for unapproved indication [Unknown]
